FAERS Safety Report 18278396 (Version 1)
Quarter: 2020Q3

REPORT INFORMATION
  Report Type: Spontaneous
  Country: US (occurrence: US)
  Receive Date: 20200917
  Receipt Date: 20200917
  Transmission Date: 20201103
  Serious: Yes (Death, Hospitalization)
  Sender: FDA-Public Use
  Company Number: None

PATIENT
  Age: 71 Year
  Sex: Female
  Weight: 67.05 kg

DRUGS (18)
  1. ESTRACE [Concomitant]
     Active Substance: ESTRADIOL
  2. OXYGEN. [Concomitant]
     Active Substance: OXYGEN
  3. ATORVASTATIN [Concomitant]
     Active Substance: ATORVASTATIN
  4. LEVOXYL [Concomitant]
     Active Substance: LEVOTHYROXINE SODIUM
  5. PEPCID [Concomitant]
     Active Substance: FAMOTIDINE
  6. ERTAPENEM. [Suspect]
     Active Substance: ERTAPENEM SODIUM
     Indication: PRODUCT USED FOR UNKNOWN INDICATION
     Route: 042
     Dates: start: 20200727, end: 20200822
  7. ELIQUIS [Concomitant]
     Active Substance: APIXABAN
  8. CBD INTENSIVE CREAM [Concomitant]
  9. BUDESONIDE. [Concomitant]
     Active Substance: BUDESONIDE
  10. DIAZEPAM. [Concomitant]
     Active Substance: DIAZEPAM
  11. FLORASTOR [Concomitant]
     Active Substance: SACCHAROMYCES CEREVISIAE
  12. TYLENOL [Concomitant]
     Active Substance: ACETAMINOPHEN
  13. ADVIL [Concomitant]
     Active Substance: IBUPROFEN
  14. OXYCODONE [Concomitant]
     Active Substance: OXYCODONE
  15. FOLIC ACID. [Concomitant]
     Active Substance: FOLIC ACID
  16. PERFOROMIST [Concomitant]
     Active Substance: FORMOTEROL FUMARATE DIHYDRATE
  17. VITAMIN B6 [Concomitant]
     Active Substance: PYRIDOXINE HYDROCHLORIDE
  18. VITAMIN D3 [Concomitant]
     Active Substance: CHOLECALCIFEROL

REACTIONS (20)
  - Mental status changes [None]
  - General physical health deterioration [None]
  - Diarrhoea [None]
  - Asthenia [None]
  - Dehydration [None]
  - Decreased appetite [None]
  - Muscular weakness [None]
  - Brain death [None]
  - Depressed level of consciousness [None]
  - Coordination abnormal [None]
  - Tremor [None]
  - Urinary retention [None]
  - Somnolence [None]
  - Pain in extremity [None]
  - Heart rate decreased [None]
  - Fungal infection [None]
  - Hypotension [None]
  - Respiratory arrest [None]
  - Culture positive [None]
  - Hallucination [None]

NARRATIVE: CASE EVENT DATE: 20200727
